FAERS Safety Report 5671636-5 (Version None)
Quarter: 2008Q1

REPORT INFORMATION
  Report Type: 
  Country: None (occurrence: None)
  Receive Date: 20080227
  Receipt Date: 20070510
  Transmission Date: 20080703
  Serious: Yes (Other)
  Sender: FDA-Public Use
  Company Number: DSA_29579_2007

PATIENT
  Sex: Female
  Weight: 138 kg

DRUGS (5)
  1. CARDIZEM CD [Suspect]
     Indication: SINUS TACHYCARDIA
     Dosage: 120 MG QD ORAL
     Route: 048
     Dates: start: 20070303, end: 20070310
  2. ATENOLOL [Suspect]
     Indication: SINUS TACHYCARDIA
     Dosage: 12.5 MG QD ORAL
     Route: 048
     Dates: start: 20070314, end: 20070315
  3. ATENOLOL [Suspect]
     Indication: SINUS TACHYCARDIA
     Dosage: ORAL
     Route: 048
     Dates: start: 20070321
  4. BACLOFEN [Concomitant]
  5. PREVACID [Concomitant]

REACTIONS (4)
  - HYPERSENSITIVITY [None]
  - OCULAR HYPERAEMIA [None]
  - PRURITUS [None]
  - RASH [None]
